FAERS Safety Report 24225138 (Version 1)
Quarter: 2024Q3

REPORT INFORMATION
  Report Type: Report from Study
  Country: US (occurrence: None)
  Receive Date: 20240820
  Receipt Date: 20240820
  Transmission Date: 20241016
  Serious: Yes (Disabling, Other)
  Sender: ASTRAZENECA
  Company Number: 2023A053161

PATIENT
  Sex: Female
  Weight: 81.6 kg

DRUGS (1)
  1. SYMBICORT [Suspect]
     Active Substance: BUDESONIDE\FORMOTEROL FUMARATE DIHYDRATE
     Indication: Asthma
     Dosage: 160/4.5 MCG, 2 PUFFS TWO TIMES A DAY
     Route: 055

REACTIONS (6)
  - Disability [Unknown]
  - Spinal disorder [Unknown]
  - Decreased activity [Unknown]
  - Gait disturbance [Unknown]
  - Hypoaesthesia [Unknown]
  - Intentional product misuse [Unknown]
